FAERS Safety Report 16338452 (Version 7)
Quarter: 2019Q4

REPORT INFORMATION
  Report Type: Spontaneous
  Country: JP (occurrence: JP)
  Receive Date: 20190521
  Receipt Date: 20191011
  Transmission Date: 20200122
  Serious: Yes (Hospitalization, Other)
  Sender: FDA-Public Use
  Company Number: JP-ASTRAZENECA-2019SE74427

PATIENT
  Age: 71 Year
  Sex: Female
  Weight: 44 kg

DRUGS (4)
  1. LYNPARZA [Suspect]
     Active Substance: OLAPARIB
     Indication: OVARIAN CANCER
     Route: 048
     Dates: start: 20180910, end: 20180926
  2. LYNPARZA [Suspect]
     Active Substance: OLAPARIB
     Indication: OVARIAN CANCER
     Route: 048
  3. LYNPARZA [Suspect]
     Active Substance: OLAPARIB
     Indication: OVARIAN CANCER
     Route: 048
     Dates: start: 20181115, end: 20181213
  4. LYNPARZA [Suspect]
     Active Substance: OLAPARIB
     Indication: OVARIAN CANCER
     Route: 048
     Dates: start: 20181025, end: 20181108

REACTIONS (4)
  - Thrombocytopenia [Recovered/Resolved]
  - Intestinal obstruction [Recovered/Resolved]
  - Malignant neoplasm progression [Unknown]
  - Erythropenia [Recovered/Resolved]

NARRATIVE: CASE EVENT DATE: 20180926
